FAERS Safety Report 12401114 (Version 1)
Quarter: 2016Q2

REPORT INFORMATION
  Report Type: Spontaneous
  Country: US (occurrence: US)
  Receive Date: 20160525
  Receipt Date: 20160525
  Transmission Date: 20160815
  Serious: No
  Sender: FDA-Public Use
  Company Number: US-SA-2015SA056203

PATIENT
  Sex: Female

DRUGS (4)
  1. SOLOSTAR [Concomitant]
     Active Substance: DEVICE
     Indication: DEVICE THERAPY
  2. LANTUS SOLOSTAR [Suspect]
     Active Substance: INSULIN GLARGINE
     Indication: DIABETES MELLITUS
     Dosage: 20 UNITS AT NIGHT, BUT WAS DECREASED TO 10 UNITS BECAUSE SHE WOULD FALL. SHE ALSO?TAKES 5 U EVERY AM
     Route: 065
  3. LANTUS SOLOSTAR [Suspect]
     Active Substance: INSULIN GLARGINE
     Indication: DIABETES MELLITUS
     Dosage: 20 UNITS AT NIGHT, BUT WAS DECREASED TO 10 UNITS BECAUSE SHE WOULD FALL. SHE ALSO?TAKES 5 U EVERY AM
     Route: 065
  4. SOLOSTAR [Concomitant]
     Active Substance: DEVICE
     Indication: DEVICE THERAPY

REACTIONS (4)
  - Blood glucose decreased [Unknown]
  - Drug administration error [Unknown]
  - Fall [Unknown]
  - Memory impairment [Unknown]
